FAERS Safety Report 11500572 (Version 2)
Quarter: 2015Q4

REPORT INFORMATION
  Report Type: Spontaneous
  Country: US (occurrence: US)
  Receive Date: 20150914
  Receipt Date: 20151019
  Transmission Date: 20160304
  Serious: No
  Sender: FDA-Public Use
  Company Number: US-PFIZER INC-2015302529

PATIENT
  Age: 10 Year
  Sex: Female

DRUGS (1)
  1. GENOTROPIN [Suspect]
     Active Substance: SOMATROPIN
     Indication: DWARFISM
     Dosage: 3.4 MG, UNK (ALTERNATE INJECTING 1.6 MG+1.8 MG, EVERY OTHER DAY, 6 DAYS A WEEK AS DIRECTED)
     Route: 058

REACTIONS (1)
  - Facial pain [Unknown]

NARRATIVE: CASE EVENT DATE: 20150905
